FAERS Safety Report 8397204 (Version 4)
Quarter: 2012Q4

REPORT INFORMATION
  Report Type: 
  Country: VE (occurrence: VE)
  Receive Date: 20120209
  Receipt Date: 20120921
  Transmission Date: 20130627
  Serious: Yes (Death, Hospitalization, Other)
  Sender: FDA-Public Use
  Company Number: VE-BRISTOL-MYERS SQUIBB COMPANY-16381238

PATIENT
  Age: 77 Year
  Sex: Male

DRUGS (1)
  1. IPILIMUMAB [Suspect]
     Indication: METASTATIC MALIGNANT MELANOMA
     Dosage: Dose for infusion 240 mg
     Route: 042
     Dates: start: 20111215, end: 20120302

REACTIONS (3)
  - Malignant neoplasm progression [Fatal]
  - Adrenal insufficiency [Unknown]
  - Diabetes mellitus [Unknown]
